FAERS Safety Report 8617718-7 (Version None)
Quarter: 2012Q3

REPORT INFORMATION
  Report Type: 
  Country: None (occurrence: None)
  Receive Date: 20120824
  Receipt Date: 20120202
  Transmission Date: 20120928
  Serious: No
  Sender: FDA-Public Use
  Company Number: US-ASTRAZENECA-2011SE77119

PATIENT
  Age: 51 Year
  Sex: Female

DRUGS (12)
  1. SINGULAIR [Suspect]
     Route: 065
  2. LORATADINE AND PSEUDOEPHEDRINE SULFATE [Suspect]
     Route: 065
  3. PREDNISONE TAB [Suspect]
     Route: 065
  4. ASMANEX TWISTHALER [Suspect]
     Indication: ASTHMA
     Route: 048
  5. ZYRTEC [Suspect]
     Route: 065
  6. ALBUTEROL [Concomitant]
     Indication: ASTHMA
  7. SYMBICORT [Suspect]
     Route: 055
  8. DULERA [Suspect]
     Route: 065
  9. ALLEGRA [Suspect]
     Route: 065
  10. ALBUTEROL [Concomitant]
     Indication: HYPERSENSITIVITY
  11. PULMICORT [Suspect]
     Route: 055
  12. FLUTICASONE PROPIONATE [Suspect]
     Route: 065

REACTIONS (6)
  - DEPRESSION [None]
  - WEIGHT INCREASED [None]
  - ARTHRALGIA [None]
  - GASTRIC DISORDER [None]
  - INSOMNIA [None]
  - HYPERSENSITIVITY [None]
